FAERS Safety Report 15335438 (Version 1)
Quarter: 2018Q3

REPORT INFORMATION
  Report Type: Report from Study
  Country: US (occurrence: US)
  Receive Date: 20180830
  Receipt Date: 20180830
  Transmission Date: 20181010
  Serious: Yes (Death)
  Sender: FDA-Public Use
  Company Number: US-BAYER-2018-162337

PATIENT
  Age: 51 Year
  Sex: Female

DRUGS (1)
  1. ACETAMINOPHEN. [Suspect]
     Active Substance: ACETAMINOPHEN

REACTIONS (15)
  - Delirium [Fatal]
  - Hepatotoxicity [Fatal]
  - Acute kidney injury [Fatal]
  - Anion gap abnormal [Fatal]
  - Thrombocytopenia [Fatal]
  - Acute lung injury [Fatal]
  - Agitation [Fatal]
  - Hyperreflexia [Fatal]
  - Metabolic acidosis [Fatal]
  - Tremor [Fatal]
  - Toxicity to various agents [Fatal]
  - Coma [Fatal]
  - Depressed level of consciousness [Fatal]
  - Haemolysis [Fatal]
  - Gastrointestinal haemorrhage [Fatal]
